FAERS Safety Report 4980995-8 (Version None)
Quarter: 2006Q2

REPORT INFORMATION
  Report Type: 
  Country: None (occurrence: None)
  Receive Date: 20060424
  Receipt Date: 20060418
  Transmission Date: 20061013
  Serious: Yes (Hospitalization)
  Sender: FDA-Public Use
  Company Number: US-BRISTOL-MYERS SQUIBB COMPANY-13349535

PATIENT
  Age: 64 Year
  Sex: Male
  Weight: 88 kg

DRUGS (3)
  1. COUMADIN [Suspect]
     Indication: AORTIC VALVE REPLACEMENT
     Dates: start: 19950101
  2. ATENOLOL [Concomitant]
     Dosage: DURATION OF THERAPY:  3-4 YEARS
  3. ASPIRIN [Concomitant]
     Dosage: DURATION OF THERAPY:  ^FOR YEARS^

REACTIONS (2)
  - INTERNATIONAL NORMALISED RATIO INCREASED [None]
  - LOWER LIMB FRACTURE [None]
